FAERS Safety Report 25483774 (Version 2)
Quarter: 2025Q3

REPORT INFORMATION
  Report Type: Spontaneous
  Country: US (occurrence: US)
  Receive Date: 20250626
  Receipt Date: 20250701
  Transmission Date: 20251021
  Serious: Yes (Life-Threatening, Hospitalization, Other)
  Sender: TEVA
  Company Number: US-TEVA-VS-3342159

PATIENT
  Age: 45 Year
  Sex: Female

DRUGS (1)
  1. FENTANYL [Suspect]
     Active Substance: FENTANYL
     Indication: Product used for unknown indication
     Route: 065

REACTIONS (7)
  - CHANTER syndrome [Unknown]
  - Toxicity to various agents [Unknown]
  - Hydrocephalus [Recovered/Resolved]
  - Incontinence [Recovered/Resolved]
  - Coma [Recovered/Resolved]
  - Intracranial pressure increased [Recovered/Resolved]
  - Drug abuse [Unknown]
